FAERS Safety Report 9530882 (Version 1)
Quarter: 2013Q2

REPORT INFORMATION
  Report Type: Spontaneous
  Country: US (occurrence: None)
  Receive Date: 20130416
  Receipt Date: 20130416
  Transmission Date: 20140414
  Serious: Yes (Hospitalization)
  Sender: FDA-Public Use
  Company Number: 2012034304

PATIENT
  Age: 68 Year
  Sex: Female
  Weight: 55.34 kg

DRUGS (10)
  1. HIZENTRA (IMMUNOGLOBULIN HUMAN NORMAL) [Suspect]
     Indication: IMMUNODEFICIENCY COMMON VARIABLE
     Dosage: 8 G 1/X WEEK, 3 SITES OVER ONE HOUR SUBCUTANEOUS
     Dates: start: 20121218, end: 20121218
  2. VITAMIN C [Concomitant]
  3. VITAMIN B-12 (CYANOCOBALAMIN) [Concomitant]
  4. B COMPLEX (VITAMIN-B-KOMPLEX STANDARD) [Concomitant]
  5. EPI-PEN (EPINEPHRINE HYDROCHLORIDE) [Concomitant]
  6. OXYGEN [Concomitant]
  7. PREDNISONE [Concomitant]
  8. SYMBICORT [Concomitant]
  9. OMEPRAZOLE [Concomitant]
  10. ALBUTEROL (SALBUTAMOL) [Concomitant]

REACTIONS (1)
  - Dyspnoea [None]
